FAERS Safety Report 21036142 (Version 1)
Quarter: 2022Q3

REPORT INFORMATION
  Report Type: Spontaneous
  Country: US (occurrence: US)
  Receive Date: 20220701
  Receipt Date: 20220701
  Transmission Date: 20221027
  Serious: No
  Sender: FDA-Public Use
  Company Number: US-THERAPEUTICSMD-2021TMD02912

PATIENT
  Age: 68 Year
  Sex: Female

DRUGS (3)
  1. IMVEXXY [Suspect]
     Active Substance: ESTRADIOL
     Indication: Atrophic vulvovaginitis
     Dosage: UNK
     Route: 067
     Dates: start: 20211202
  2. VIVELLE [Concomitant]
     Active Substance: ESTRADIOL
  3. UNSPECIFIED ORAL ESTROGEN [Concomitant]
     Route: 048

REACTIONS (2)
  - Urine odour abnormal [Not Recovered/Not Resolved]
  - Labia enlarged [Not Recovered/Not Resolved]

NARRATIVE: CASE EVENT DATE: 20211203
